FAERS Safety Report 23180554 (Version 1)
Quarter: 2023Q4

REPORT INFORMATION
  Report Type: Spontaneous
  Country: US (occurrence: US)
  Receive Date: 20231114
  Receipt Date: 20231114
  Transmission Date: 20240109
  Serious: Yes (Other)
  Sender: FDA-Public Use
  Company Number: US-UCBSA-2023053962

PATIENT

DRUGS (3)
  1. KEPPRA [Suspect]
     Active Substance: LEVETIRACETAM
     Indication: Product used for unknown indication
     Dosage: 250 MILLIGRAM
  2. BRAFTOVI [Concomitant]
     Active Substance: ENCORAFENIB
     Indication: Malignant melanoma
     Dosage: 75 MILLIGRAM, TAKE 6 CAPSULES BY MOUTH EVERY DAY
     Route: 048
     Dates: start: 20230914
  3. MEKTOVI [Concomitant]
     Active Substance: BINIMETINIB
     Indication: Product used for unknown indication

REACTIONS (2)
  - Seizure [Unknown]
  - Underdose [Unknown]
